FAERS Safety Report 16556485 (Version 1)
Quarter: 2019Q3

REPORT INFORMATION
  Report Type: Spontaneous
  Country: US (occurrence: US)
  Receive Date: 20190710
  Receipt Date: 20190710
  Transmission Date: 20191004
  Serious: Yes (Life-Threatening, Other)
  Sender: FDA-Public Use
  Company Number: US-BAXTER-2019BAX013206

PATIENT
  Age: 71 Year
  Sex: Male

DRUGS (5)
  1. PHENYLEPHRINE [Concomitant]
     Active Substance: PHENYLEPHRINE HYDROCHLORIDE
     Indication: PUPIL DILATION PROCEDURE
     Dosage: RECEIVED THREE SETS OF EYE DROPS
     Route: 047
  2. CYCLOPENTOLATE. [Concomitant]
     Active Substance: CYCLOPENTOLATE
     Indication: PUPIL DILATION PROCEDURE
     Dosage: RECEIVED THREE SETS OF EYE DROPS
     Route: 047
  3. LIDOCAINE. [Suspect]
     Active Substance: LIDOCAINE
     Indication: NERVE BLOCK
     Dosage: INJECTING 6 CC OF A 1:1 MIXTURE OF 0.75% BUPIVACAINE AND 2.0% LIDOCAINE
     Route: 065
  4. BUPIVACAINE HYDROCHLORIDE IN 8.25% DEXTROSE INJECTION USP [Suspect]
     Active Substance: BUPIVACAINE HYDROCHLORIDE
     Indication: NERVE BLOCK
     Dosage: INJECTION OF 6 CC OF A 1:1 MIXTURE OF 0.75% BUPIVACAINE AND 2.0% LIDOCAINE
     Route: 065
  5. PROPOFOL. [Concomitant]
     Active Substance: PROPOFOL
     Indication: ANAESTHESIA PROCEDURE
     Route: 065

REACTIONS (4)
  - Wrong technique in product usage process [Recovered/Resolved]
  - Mydriasis [Recovered/Resolved]
  - Amaurosis [Recovered/Resolved]
  - Injection site extravasation [Recovered/Resolved]
